FAERS Safety Report 6711881-0 (Version None)
Quarter: 2010Q2

REPORT INFORMATION
  Report Type: 
  Country: None (occurrence: None)
  Receive Date: 20100505
  Receipt Date: 20100429
  Transmission Date: 20101027
  Serious: Yes (Hospitalization)
  Sender: FDA-Public Use
  Company Number: TR-ELI_LILLY_AND_COMPANY-TR201004008319

PATIENT
  Age: 50 Year
  Sex: Female

DRUGS (2)
  1. HUMALOG MIX 75/25 [Suspect]
     Indication: DIABETES MELLITUS
     Dosage: UNK, EACH MORNING
     Route: 058
     Dates: start: 20100215
  2. HUMALOG MIX 75/25 [Suspect]
     Dosage: UNK, EACH EVENING
     Route: 058
     Dates: start: 20100215

REACTIONS (3)
  - ANGIOGRAM [None]
  - MUSCULAR WEAKNESS [None]
  - PAIN IN EXTREMITY [None]
